FAERS Safety Report 8141808-9 (Version None)
Quarter: 2012Q1

REPORT INFORMATION
  Report Type: 
  Country: None (occurrence: None)
  Receive Date: 20120216
  Receipt Date: 20120206
  Transmission Date: 20120608
  Serious: Yes (Death)
  Sender: FDA-Public Use
  Company Number: FR-ELI_LILLY_AND_COMPANY-FR201012002284

PATIENT
  Age: 48 Year
  Sex: Male

DRUGS (4)
  1. CORTICOSTEROIDS [Concomitant]
  2. FORTEO [Suspect]
     Indication: OSTEOPOROSIS
     Dosage: 20 UG, DAILY (1/D)
     Route: 058
     Dates: start: 20100610, end: 20100728
  3. REMICADE [Concomitant]
  4. IMURAN [Concomitant]
     Dosage: UNK
     Dates: end: 20100601

REACTIONS (4)
  - DEATH [None]
  - BLOOD BILIRUBIN INCREASED [None]
  - DRUG DOSE OMISSION [None]
  - TRANSAMINASES INCREASED [None]
